FAERS Safety Report 10214555 (Version 1)
Quarter: 2014Q2

REPORT INFORMATION
  Report Type: Spontaneous
  Country: JP (occurrence: JP)
  Receive Date: 20140603
  Receipt Date: 20140603
  Transmission Date: 20141212
  Serious: Yes (Other)
  Sender: FDA-Public Use
  Company Number: JP-MYLANLABS-2014S1012323

PATIENT
  Age: 14 Year
  Sex: Male

DRUGS (6)
  1. CARBOPLATIN [Suspect]
     Indication: BRAIN NEOPLASM
     Route: 041
  2. CISPLATIN [Suspect]
     Indication: BRAIN NEOPLASM
     Route: 041
  3. ENDOXAN [Suspect]
     Indication: BRAIN NEOPLASM
  4. IFOMIDE [Suspect]
     Indication: BRAIN NEOPLASM
     Route: 041
  5. ETOPOSIDE [Suspect]
     Indication: BRAIN NEOPLASM
     Route: 041
  6. BLEO [Suspect]
     Indication: BRAIN NEOPLASM
     Route: 042

REACTIONS (1)
  - Renal failure acute [Recovering/Resolving]
